FAERS Safety Report 9240171 (Version 1)
Quarter: 2013Q2

REPORT INFORMATION
  Report Type: Spontaneous
  Country: US (occurrence: None)
  Receive Date: 20130417
  Receipt Date: 20130417
  Transmission Date: 20140414
  Serious: Yes (Life-Threatening, Other)
  Sender: FDA-Public Use
  Company Number: 001512880A

PATIENT
  Age: 28 Year
  Sex: Female

DRUGS (3)
  1. PROACTIV [Suspect]
     Indication: ACNE
     Dosage: TWICE DAILY DERMAL
     Dates: start: 20130324, end: 20130326
  2. PROACTIV [Suspect]
     Indication: ACNE
     Dosage: TWICE DAILY DERMAL
     Dates: start: 20130324, end: 20130326
  3. PROACTIV [Suspect]
     Indication: ACNE
     Dosage: TWICE DAILY DERMAL
     Dates: start: 20130324, end: 20130326

REACTIONS (4)
  - Eye swelling [None]
  - Swelling face [None]
  - Pharyngeal oedema [None]
  - Throat tightness [None]
